FAERS Safety Report 8532193-9 (Version None)
Quarter: 2012Q3

REPORT INFORMATION
  Report Type: 
  Country: None (occurrence: None)
  Receive Date: 20120723
  Receipt Date: 20120717
  Transmission Date: 20120928
  Serious: Yes (Other)
  Sender: FDA-Public Use
  Company Number: US-ROCHE-1064917

PATIENT
  Sex: Male

DRUGS (1)
  1. RANIBIZUMAB [Suspect]
     Indication: MACULAR DEGENERATION
     Dosage: AS NECESSARY; LAST DOSE OF STUDY DRUG: 28/FEB/2012
     Route: 050
     Dates: start: 20100506

REACTIONS (1)
  - CEREBROVASCULAR DISORDER [None]
